FAERS Safety Report 7808400-4 (Version None)
Quarter: 2011Q4

REPORT INFORMATION
  Report Type: 
  Country: None (occurrence: None)
  Receive Date: 20111007
  Receipt Date: 20110922
  Transmission Date: 20120403
  Serious: Yes (Other)
  Sender: FDA-Public Use
  Company Number: 2011PV000054

PATIENT
  Sex: Male

DRUGS (1)
  1. DEPOCYT [Suspect]
     Dosage: INTH
     Route: 039

REACTIONS (4)
  - SENSORY DISTURBANCE [None]
  - ANGIOPATHY [None]
  - NEUROTOXICITY [None]
  - NEURALGIA [None]
